FAERS Safety Report 7690843-3 (Version None)
Quarter: 2011Q3

REPORT INFORMATION
  Report Type: 
  Country: None (occurrence: None)
  Receive Date: 20110818
  Receipt Date: 20110711
  Transmission Date: 20111222
  Serious: No
  Sender: FDA-Public Use
  Company Number: US-RB-026903-11

PATIENT
  Age: 16 Year
  Sex: Female

DRUGS (1)
  1. MUCINEX DM [Suspect]
     Indication: PRODUCT USED FOR UNKNOWN INDICATION
     Dosage: PATIENT TOOK 6 BOXES IN 7 DAYS
     Route: 048

REACTIONS (3)
  - DRUG ABUSE [None]
  - DECREASED APPETITE [None]
  - INSOMNIA [None]
